FAERS Safety Report 5847437-1 (Version None)
Quarter: 2008Q3

REPORT INFORMATION
  Report Type: 
  Country: None (occurrence: None)
  Receive Date: 20080813
  Receipt Date: 20080731
  Transmission Date: 20090109
  Serious: Yes (Death)
  Sender: FDA-Public Use
  Company Number: 100#08#2008-03874

PATIENT
  Age: 71 Year
  Sex: Male

DRUGS (1)
  1. METHOTREXATE [Suspect]
     Indication: RHEUMATOID ARTHRITIS
     Dosage: 6 MG/WEEK; 8 MG/WEEK

REACTIONS (12)
  - ANGIOCENTRIC LYMPHOMA [None]
  - BLOOD IMMUNOGLOBULIN E INCREASED [None]
  - BLOOD LACTATE DEHYDROGENASE INCREASED [None]
  - DIFFUSE ALVEOLAR DAMAGE [None]
  - EPSTEIN-BARR VIRUS INFECTION [None]
  - HAEMOGLOBIN DECREASED [None]
  - HYPOXIA [None]
  - INTERSTITIAL LUNG DISEASE [None]
  - LYMPHOCYTE STIMULATION TEST POSITIVE [None]
  - LYMPHOPROLIFERATIVE DISORDER [None]
  - PLATELET COUNT INCREASED [None]
  - PROTEIN TOTAL DECREASED [None]
